FAERS Safety Report 4555288-3 (Version None)
Quarter: 2005Q1

REPORT INFORMATION
  Report Type: 
  Country: None (occurrence: None)
  Receive Date: 20041227
  Receipt Date: 20040712
  Transmission Date: 20050727
  Serious: No
  Sender: FDA-Public Use
  Company Number: US083187

PATIENT
  Age: 29 Year
  Sex: Female

DRUGS (1)
  1. ARANESP [Suspect]
     Indication: ANAEMIA
     Dosage: 1 IN 2 WEEKS
     Dates: start: 20040601

REACTIONS (1)
  - URTICARIA [None]
